FAERS Safety Report 10191276 (Version 3)
Quarter: 2014Q2

REPORT INFORMATION
  Report Type: Spontaneous
  Country: DE (occurrence: None)
  Receive Date: 20140521
  Receipt Date: 20140605
  Transmission Date: 20141212
  Serious: Yes (Life-Threatening, Hospitalization)
  Sender: FDA-Public Use
  Company Number: AUR-APL-2014-05813

PATIENT
  Age: 54 Year
  Sex: Male
  Weight: 63 kg

DRUGS (9)
  1. RAMIPRIL [Suspect]
     Indication: HYPERTENSION
     Dosage: (5 MG, TOTAL), ORAL
     Route: 048
     Dates: start: 20140414
  2. ROCEPHIN [Suspect]
     Indication: PANCREAS INFECTION
     Dosage: (2 GM, TOTAL), INTRAVENOUS (NOT OTHERWISE SPECIFIED)?
     Route: 042
     Dates: start: 20140414
  3. NORMOFUNDIN (NORMOFUNDIN) [Concomitant]
  4. PANTOPRAZOLE (PANTOPRAZOLE) [Concomitant]
  5. KREON (PANCREATIN) [Concomitant]
  6. BELOK-ZOK MITE (METOPROLOL SUCCINATE) [Concomitant]
  7. SAROTEN (AMITRIPTYLINE HYDROCHLORIDE) [Concomitant]
  8. VITAMIN B COMPLEX (VITAMIN B COMPLEX) [Concomitant]
  9. MAGNESIUM VERLA (MAGNESIUM  VERLA) [Concomitant]

REACTIONS (3)
  - Angioedema [None]
  - Bradycardia [None]
  - Circulatory collapse [None]
